FAERS Safety Report 19859261 (Version 3)
Quarter: 2021Q4

REPORT INFORMATION
  Report Type: Spontaneous
  Country: DE (occurrence: DE)
  Receive Date: 20210921
  Receipt Date: 20211108
  Transmission Date: 20220303
  Serious: Yes (Hospitalization, Other)
  Sender: FDA-Public Use
  Company Number: DE-BIOGEN-2021BI01048917

PATIENT
  Sex: Male

DRUGS (1)
  1. SPINRAZA [Suspect]
     Active Substance: NUSINERSEN
     Indication: Spinal muscular atrophy
     Route: 037
     Dates: start: 2017

REACTIONS (4)
  - Post procedural complication [Recovered/Resolved with Sequelae]
  - Neuromuscular scoliosis [Unknown]
  - Nervous system disorder [Unknown]
  - Spinal muscular atrophy [Unknown]

NARRATIVE: CASE EVENT DATE: 20190101
